FAERS Safety Report 19644357 (Version 1)
Quarter: 2021Q3

REPORT INFORMATION
  Report Type: Spontaneous
  Country: FR (occurrence: FR)
  Receive Date: 20210801
  Receipt Date: 20210801
  Transmission Date: 20211014
  Serious: Yes (Hospitalization)
  Sender: FDA-Public Use
  Company Number: FR-ROCHE-2880020

PATIENT
  Age: 65 Year
  Sex: Male

DRUGS (2)
  1. LEXOMIL [Suspect]
     Active Substance: BROMAZEPAM
     Indication: PRODUCT USED FOR UNKNOWN INDICATION
     Route: 065
  2. DIAZEPAM. [Suspect]
     Active Substance: DIAZEPAM
     Indication: PRODUCT USED FOR UNKNOWN INDICATION
     Route: 065

REACTIONS (3)
  - Intentional product misuse [Unknown]
  - Self-medication [Unknown]
  - Respiratory distress [Recovered/Resolved]
